FAERS Safety Report 9549094 (Version 1)
Quarter: 2013Q3

REPORT INFORMATION
  Report Type: Spontaneous
  Country: US (occurrence: None)
  Receive Date: 20130923
  Receipt Date: 20130923
  Transmission Date: 20140515
  Serious: Yes (Life-Threatening, Hospitalization, Disabling)
  Sender: FDA-Public Use
  Company Number: None

PATIENT
  Age: 19 Year
  Sex: Female
  Weight: 47.63 kg

DRUGS (1)
  1. MICROGESTIN 1.5/30 [Suspect]
     Indication: CONTRACEPTION
     Route: 048
     Dates: start: 20120823, end: 20121012

REACTIONS (1)
  - Pulmonary thrombosis [None]
